FAERS Safety Report 5198487-2 (Version None)
Quarter: 2007Q1

REPORT INFORMATION
  Report Type: 
  Country: None (occurrence: None)
  Receive Date: 20070104
  Receipt Date: 20061221
  Transmission Date: 20070707
  Serious: Yes (Other)
  Sender: FDA-Public Use
  Company Number: GSK499

PATIENT
  Age: 29 Year
  Sex: Male

DRUGS (5)
  1. SOLPADEINE [Suspect]
     Indication: DRUG USE FOR UNKNOWN INDICATION
     Route: 048
  2. OLANZAPINE [Suspect]
     Route: 065
  3. IBUPROFEN [Suspect]
     Route: 065
  4. ETHANOL [Suspect]
     Route: 065
  5. CHLORPROMAZINE [Suspect]
     Route: 065

REACTIONS (2)
  - INTENTIONAL OVERDOSE [None]
  - VOMITING [None]
